FAERS Safety Report 21737655 (Version 1)
Quarter: 2022Q4

REPORT INFORMATION
  Report Type: Spontaneous
  Country: GB (occurrence: GB)
  Receive Date: 20221216
  Receipt Date: 20221216
  Transmission Date: 20230113
  Serious: Yes (Other)
  Sender: FDA-Public Use
  Company Number: GB-AUROBINDO-AUR-APL-2022-052636

PATIENT
  Sex: Female

DRUGS (2)
  1. ATENOLOL [Suspect]
     Active Substance: ATENOLOL
     Indication: Blood pressure management
     Dosage: UNK,(ATENOLOL 50 MG WHITE TABLETS 28 OVER THE COURSE OF A FEW MONTHS)
     Route: 065
  2. ATENOLOL [Suspect]
     Active Substance: ATENOLOL
     Dosage: UNK,(ATENOLOL HAS BEEN INCREASED WITH THE ADDITION OF ANOTHER TABLET/ AROUND 7-8 DAYS)
     Route: 065

REACTIONS (4)
  - Ocular discomfort [Unknown]
  - Headache [Unknown]
  - Drug ineffective [Unknown]
  - Product substitution issue [Unknown]
